FAERS Safety Report 25995956 (Version 1)
Quarter: 2025Q4

REPORT INFORMATION
  Report Type: Spontaneous
  Country: CN (occurrence: CN)
  Receive Date: 20251104
  Receipt Date: 20251104
  Transmission Date: 20260118
  Serious: Yes (Hospitalization)
  Sender: PFIZER
  Company Number: CN-PFIZER INC-PV202500128235

PATIENT
  Age: 62 Year
  Sex: Female
  Weight: 46.6 kg

DRUGS (2)
  1. EPIRUBICIN HYDROCHLORIDE [Suspect]
     Active Substance: EPIRUBICIN HYDROCHLORIDE
     Indication: Soft tissue sarcoma
     Dosage: 100 MG, 1X/DAY
     Route: 041
     Dates: start: 20251011, end: 20251011
  2. CISPLATIN [Suspect]
     Active Substance: CISPLATIN
     Indication: Soft tissue sarcoma
     Dosage: 100 MG, 1X/DAY
     Route: 041
     Dates: start: 20251011, end: 20251011

REACTIONS (1)
  - Gastrointestinal disorder [Recovering/Resolving]

NARRATIVE: CASE EVENT DATE: 20251012
